FAERS Safety Report 7848403 (Version 6)
Quarter: 2013Q2

REPORT INFORMATION
  Report Type: Spontaneous
  Country: US (occurrence: US)
  Receive Date: 20110309
  Receipt Date: 20130524
  Transmission Date: 20140414
  Serious: Yes (Hospitalization, Other)
  Sender: FDA-Public Use
  Company Number: US-ASTRAZENECA-2010SE60142

PATIENT
  Age: 83 Year
  Sex: Female

DRUGS (1)
  1. ARIMIDEX [Suspect]
     Route: 048

REACTIONS (18)
  - Skin cancer [Unknown]
  - Pulmonary mass [Unknown]
  - Neoplasm malignant [Unknown]
  - Nodule [Unknown]
  - Throat cancer [Unknown]
  - Multiple allergies [Unknown]
  - Chest pain [Unknown]
  - Nasopharyngitis [Unknown]
  - Respiratory tract congestion [Unknown]
  - Cough [Unknown]
  - Dyspnoea [Unknown]
  - Pneumonia [Recovered/Resolved]
  - Starvation [Unknown]
  - Abdominal discomfort [Unknown]
  - Hearing impaired [Unknown]
  - Decreased appetite [Unknown]
  - Alopecia [Unknown]
  - Vomiting [Unknown]
